FAERS Safety Report 8966538 (Version 1)
Quarter: 2012Q4

REPORT INFORMATION
  Report Type: Spontaneous
  Country: DK (occurrence: None)
  Receive Date: 20121206
  Receipt Date: 20121206
  Transmission Date: 20130627
  Serious: Yes (Other)
  Sender: FDA-Public Use
  Company Number: 2012MA013814

PATIENT
  Age: 67 Year
  Sex: Male

DRUGS (5)
  1. BISOPROLOL FUMARATE AND HYDROCHLOROTHIAZIDE [Suspect]
     Indication: CORONARY ARTERY DISEASE
     Route: 048
     Dates: start: 20070228, end: 20120305
  2. AMLODIPINE [Concomitant]
  3. CLOPIDOGREL [Concomitant]
  4. QUINAPRIL [Concomitant]
  5. RANITIDINE [Concomitant]

REACTIONS (5)
  - Muscle spasms [None]
  - Mobility decreased [None]
  - Varicose vein [None]
  - Arterial occlusive disease [None]
  - Pain in extremity [None]
